FAERS Safety Report 6806135-8 (Version None)
Quarter: 2010Q2

REPORT INFORMATION
  Report Type: 
  Country: None (occurrence: None)
  Receive Date: 20100629
  Receipt Date: 20080102
  Transmission Date: 20101027
  Serious: No
  Sender: FDA-Public Use
  Company Number: US-PFIZER INC-2008000754

PATIENT
  Sex: Male
  Weight: 95.454 kg

DRUGS (4)
  1. XANAX [Suspect]
  2. CHANTIX [Interacting]
     Indication: SMOKING CESSATION THERAPY
     Dates: start: 20071229, end: 20080101
  3. TYLENOL PM [Interacting]
     Indication: SLEEP DISORDER
     Dates: start: 20070101
  4. TYLENOL PM [Interacting]
     Indication: BACK PAIN

REACTIONS (5)
  - DRUG INTERACTION [None]
  - INFLUENZA [None]
  - PRURITUS [None]
  - PYREXIA [None]
  - RASH [None]
